FAERS Safety Report 8479068-1 (Version None)
Quarter: 2012Q2

REPORT INFORMATION
  Report Type: 
  Country: None (occurrence: None)
  Receive Date: 20120629
  Receipt Date: 20120621
  Transmission Date: 20120825
  Serious: Yes (Other)
  Sender: FDA-Public Use
  Company Number: CA-JNJFOC-20120604136

PATIENT
  Sex: Male
  Weight: 87 kg

DRUGS (3)
  1. REMICADE [Suspect]
     Indication: CROHN'S DISEASE
     Dosage: 52 WEEKS
     Route: 042
     Dates: start: 20070117
  2. ACETAMINOPHEN [Concomitant]
     Indication: PREMEDICATION
     Route: 048
  3. HYDROCORTISONE ACETATE [Concomitant]
     Indication: PREMEDICATION
     Route: 042

REACTIONS (3)
  - NEPHROLITHIASIS [None]
  - ADVERSE EVENT [None]
  - HEPATOMEGALY [None]
